FAERS Safety Report 4608652-8 (Version None)
Quarter: 2005Q1

REPORT INFORMATION
  Report Type: 
  Country: None (occurrence: None)
  Receive Date: 20050315
  Receipt Date: 20050303
  Transmission Date: 20050727
  Serious: Yes (Death, Life-Threatening, Hospitalization)
  Sender: FDA-Public Use
  Company Number: PT-JNJFOC-20050300009

PATIENT
  Sex: Male

DRUGS (3)
  1. REMINYL [Suspect]
     Route: 049
  2. ENALAPRIL [Concomitant]
     Indication: HYPERTENSION
     Route: 049
  3. PAROXETINE HCL [Concomitant]
     Indication: DEPRESSION
     Route: 049

REACTIONS (2)
  - HAEMORRHAGIC STROKE [None]
  - URINARY TRACT INFECTION [None]
